FAERS Safety Report 14127595 (Version 4)
Quarter: 2018Q1

REPORT INFORMATION
  Report Type: Report from Study
  Country: EC (occurrence: EC)
  Receive Date: 20171026
  Receipt Date: 20180223
  Transmission Date: 20180508
  Serious: Yes (Death, Hospitalization, Disabling)
  Sender: FDA-Public Use
  Company Number: EC-ROCHE-2011432

PATIENT
  Age: 55 Year
  Sex: Male

DRUGS (2)
  1. AVASTIN [Suspect]
     Active Substance: BEVACIZUMAB
     Indication: COLON CANCER
     Route: 042
     Dates: start: 20171005
  2. CAPECITABINE. [Suspect]
     Active Substance: CAPECITABINE
     Indication: COLON CANCER
     Route: 048

REACTIONS (10)
  - Speech disorder [Recovering/Resolving]
  - Performance status decreased [Unknown]
  - Peritonitis [Unknown]
  - Gait inability [Not Recovered/Not Resolved]
  - Mood altered [Unknown]
  - Asphyxia [Unknown]
  - Cardio-respiratory arrest [Fatal]
  - Headache [Recovering/Resolving]
  - Pain [Unknown]
  - Nausea [Unknown]

NARRATIVE: CASE EVENT DATE: 20171102
